FAERS Safety Report 20993864 (Version 2)
Quarter: 2022Q2

REPORT INFORMATION
  Report Type: Spontaneous
  Country: BR (occurrence: BR)
  Receive Date: 20220622
  Receipt Date: 20220623
  Transmission Date: 20220720
  Serious: Yes (Death, Other)
  Sender: FDA-Public Use
  Company Number: BR-TAKEDA-2022TUS040690

PATIENT
  Age: 10 Year
  Sex: Male

DRUGS (1)
  1. ELAPRASE [Suspect]
     Active Substance: IDURSULFASE
     Indication: Mucopolysaccharidosis II
     Dosage: UNK
     Route: 065

REACTIONS (6)
  - Adverse event [Fatal]
  - Haemorrhage [Fatal]
  - Inguinal hernia [Unknown]
  - Gallbladder disorder [Unknown]
  - Surgery [Unknown]
  - Post procedural complication [Unknown]
